FAERS Safety Report 22354998 (Version 3)
Quarter: 2024Q2

REPORT INFORMATION
  Report Type: Spontaneous
  Country: CA (occurrence: CA)
  Receive Date: 20230523
  Receipt Date: 20240422
  Transmission Date: 20240716
  Serious: Yes (Hospitalization)
  Sender: FDA-Public Use
  Company Number: CA-ADVANZ PHARMA-202211007881

PATIENT
  Age: 48 Year
  Sex: Female

DRUGS (3)
  1. OCALIVA [Suspect]
     Active Substance: OBETICHOLIC ACID
     Indication: Primary biliary cholangitis
     Dosage: 5 MG, QD, OCALIVA
     Route: 048
     Dates: start: 20181120
  2. OCALIVA [Suspect]
     Active Substance: OBETICHOLIC ACID
     Dosage: 10 MG, QD
     Route: 048
     Dates: end: 202308
  3. URSO [Concomitant]
     Active Substance: URSODIOL
     Dosage: UNK
     Dates: start: 2013

REACTIONS (4)
  - Liver disorder [Not Recovered/Not Resolved]
  - Vomiting [Unknown]
  - Incoherent [Unknown]
  - Peripheral swelling [Not Recovered/Not Resolved]
